FAERS Safety Report 8159456-3 (Version None)
Quarter: 2012Q1

REPORT INFORMATION
  Report Type: 
  Country: None (occurrence: None)
  Receive Date: 20120223
  Receipt Date: 20120214
  Transmission Date: 20120608
  Serious: Yes (Other)
  Sender: FDA-Public Use
  Company Number: US-BAYER-2012-015259

PATIENT

DRUGS (2)
  1. ALEVE (CAPLET) [Suspect]
  2. ACETAMINOPHEN [Suspect]

REACTIONS (2)
  - FATIGUE [None]
  - LIVER INJURY [None]
